FAERS Safety Report 9404415 (Version 1)
Quarter: 2013Q3

REPORT INFORMATION
  Report Type: Spontaneous
  Country: US (occurrence: None)
  Receive Date: 20130716
  Receipt Date: 20130716
  Transmission Date: 20140515
  Serious: Yes (Other)
  Sender: FDA-Public Use
  Company Number: None

PATIENT
  Sex: 0

DRUGS (1)
  1. XELODA [Suspect]
     Indication: RECTAL CANCER
     Dosage: XELODA 500MG 4 TABS BID FOR 7 DAYS THEN OFF FOR BY MOUTH
     Route: 048
     Dates: start: 20130330, end: 20130701

REACTIONS (2)
  - Abdominal pain [None]
  - Gastrointestinal haemorrhage [None]
